FAERS Safety Report 19278972 (Version 4)
Quarter: 2021Q3

REPORT INFORMATION
  Report Type: Spontaneous
  Country: US (occurrence: US)
  Receive Date: 20210520
  Receipt Date: 20210709
  Transmission Date: 20211014
  Serious: Yes (Other)
  Sender: FDA-Public Use
  Company Number: US-ORGANON-O2105USA001279

PATIENT
  Age: 29 Year
  Sex: Female
  Weight: 58.06 kg

DRUGS (1)
  1. NEXPLANON [Suspect]
     Active Substance: ETONOGESTREL
     Dosage: 1 IMPLANT (68 MILLIGRAM), LEFT UPPER ARM
     Dates: end: 20210514

REACTIONS (6)
  - Complication of device removal [Recovered/Resolved]
  - Surgery [Unknown]
  - Device deployment issue [Recovered/Resolved]
  - Menometrorrhagia [Unknown]
  - Complication associated with device [Recovered/Resolved]
  - Device issue [Recovered/Resolved]

NARRATIVE: CASE EVENT DATE: 202012
